FAERS Safety Report 19392576 (Version 6)
Quarter: 2022Q1

REPORT INFORMATION
  Report Type: Report from Study
  Country: US (occurrence: US)
  Receive Date: 20210609
  Receipt Date: 20220215
  Transmission Date: 20220423
  Serious: Yes (Other)
  Sender: FDA-Public Use
  Company Number: US-ABBVIE-21K-163-3937263-00

PATIENT
  Sex: Female

DRUGS (5)
  1. HUMIRA [Suspect]
     Active Substance: ADALIMUMAB
     Indication: Hidradenitis
     Dosage: CITRATE FREE
     Route: 058
     Dates: start: 20210426, end: 2021
  2. HUMIRA [Suspect]
     Active Substance: ADALIMUMAB
     Indication: Crohn^s disease
     Route: 058
     Dates: start: 202105
  3. HUMIRA [Suspect]
     Active Substance: ADALIMUMAB
     Route: 058
  4. MODERNA COVID-19 VACCINE [Concomitant]
     Active Substance: ELASOMERAN
     Indication: COVID-19 immunisation
     Dosage: FIRST DOSE
     Route: 030
     Dates: start: 20210321, end: 20210321
  5. MODERNA COVID-19 VACCINE [Concomitant]
     Active Substance: ELASOMERAN
     Dosage: SECOND DOSE
     Route: 030
     Dates: start: 20210405, end: 20210405

REACTIONS (26)
  - Loss of consciousness [Unknown]
  - Limb operation [Unknown]
  - Dizziness [Unknown]
  - Dental operation [Unknown]
  - Weight decreased [Unknown]
  - Skin haemorrhage [Not Recovered/Not Resolved]
  - Hypophagia [Unknown]
  - Throat irritation [Unknown]
  - Head injury [Unknown]
  - Swelling [Unknown]
  - Impaired quality of life [Not Recovered/Not Resolved]
  - Thrombosis [Unknown]
  - Hyperhidrosis [Unknown]
  - Wound haemorrhage [Unknown]
  - Wound secretion [Unknown]
  - Wound complication [Unknown]
  - Pruritus [Not Recovered/Not Resolved]
  - Diabetes mellitus [Unknown]
  - Blood potassium decreased [Unknown]
  - Flushing [Unknown]
  - Nasopharyngitis [Unknown]
  - Furuncle [Not Recovered/Not Resolved]
  - COVID-19 [Not Recovered/Not Resolved]
  - Dehydration [Unknown]
  - Purulent discharge [Not Recovered/Not Resolved]
  - Pain of skin [Not Recovered/Not Resolved]

NARRATIVE: CASE EVENT DATE: 20210101
